FAERS Safety Report 10786606 (Version 1)
Quarter: 2015Q1

REPORT INFORMATION
  Report Type: Spontaneous
  Country: US (occurrence: US)
  Receive Date: 20150211
  Receipt Date: 20150211
  Transmission Date: 20150721
  Serious: No
  Sender: FDA-Public Use
  Company Number: US-TARO-2014P1000258

PATIENT
  Age: 64 Year
  Sex: Male
  Weight: 111.13 kg

DRUGS (4)
  1. NYSTATIN AND TRIAMCINOLONE ACETONIDE [Suspect]
     Active Substance: NYSTATIN\TRIAMCINOLONE ACETONIDE
     Indication: TINEA CRURIS
  2. FISH OIL [Concomitant]
     Active Substance: FISH OIL
     Dosage: QD
  3. NYSTATIN AND TRIAMCINOLONE ACETONIDE [Suspect]
     Active Substance: NYSTATIN\TRIAMCINOLONE ACETONIDE
     Indication: PRURITUS GENITAL
     Dosage: QD
     Route: 061
  4. CINNAMON  PILL [Concomitant]
     Dosage: QD

REACTIONS (1)
  - Application site discolouration [Not Recovered/Not Resolved]

NARRATIVE: CASE EVENT DATE: 201401
